FAERS Safety Report 8796140 (Version 1)
Quarter: 2012Q4

REPORT INFORMATION
  Report Type: 
  Country: AU (occurrence: AU)
  Receive Date: 20120919
  Receipt Date: 20120919
  Transmission Date: 20130627
  Serious: Yes (Other)
  Sender: FDA-Public Use
  Company Number: AU-BRISTOL-MYERS SQUIBB COMPANY-16093320

PATIENT
  Age: 52 Year
  Sex: Male

DRUGS (3)
  1. REYATAZ CAPS 300 MG [Suspect]
  2. TRUVADA [Suspect]
  3. RITONAVIR [Suspect]

REACTIONS (1)
  - Radial nerve palsy [Unknown]
